FAERS Safety Report 14846608 (Version 1)
Quarter: 2018Q2

REPORT INFORMATION
  Report Type: Spontaneous
  Country: US (occurrence: US)
  Receive Date: 20180504
  Receipt Date: 20180504
  Transmission Date: 20180711
  Serious: No
  Sender: FDA-Public Use
  Company Number: US-ASTRAZENECA-2018SE55421

PATIENT
  Sex: Male
  Weight: 74.8 kg

DRUGS (3)
  1. NEXIUM 24HR CLEARMINIS [Suspect]
     Active Substance: ESOMEPRAZOLE MAGNESIUM
     Indication: GASTROOESOPHAGEAL REFLUX DISEASE
     Route: 048
  2. BENTYL [Concomitant]
     Active Substance: DICYCLOMINE HYDROCHLORIDE
     Indication: ILL-DEFINED DISORDER
     Dosage: UNKNOWN
     Route: 065
  3. NEXIUM GENERIC CAPSULE [Suspect]
     Active Substance: ESOMEPRAZOLE MAGNESIUM
     Indication: GASTROOESOPHAGEAL REFLUX DISEASE
     Route: 048
     Dates: start: 201709

REACTIONS (3)
  - Vomiting [Not Recovered/Not Resolved]
  - Insurance issue [Unknown]
  - Diarrhoea [Not Recovered/Not Resolved]
